FAERS Safety Report 6517837-5 (Version None)
Quarter: 2009Q4

REPORT INFORMATION
  Report Type: 
  Country: None (occurrence: None)
  Receive Date: 20091224
  Receipt Date: 20091215
  Transmission Date: 20100525
  Serious: Yes (Disabling, Other)
  Sender: FDA-Public Use
  Company Number: PHHY2008JP22033

PATIENT
  Sex: Female
  Weight: 41 kg

DRUGS (3)
  1. ZOMETA [Suspect]
     Indication: METASTASES TO BONE
     Dosage: 4 MG, QMO
     Route: 042
     Dates: start: 20061005, end: 20080424
  2. ZOMETA [Suspect]
     Indication: METASTASES TO LUNG
  3. HERCEPTIN [Concomitant]
     Indication: BREAST CANCER
     Dosage: 87.5 MG, UNK
     Route: 042
     Dates: start: 20061207, end: 20090622

REACTIONS (9)
  - BONE DISORDER [None]
  - GINGIVAL CANCER [None]
  - IMPAIRED HEALING [None]
  - INFECTION [None]
  - JAW LESION EXCISION [None]
  - METASTASES TO PERITONEUM [None]
  - OSTEONECROSIS [None]
  - PRIMARY SEQUESTRUM [None]
  - TOOTH EXTRACTION [None]
